FAERS Safety Report 25508422 (Version 8)
Quarter: 2025Q4

REPORT INFORMATION
  Report Type: Report from Study
  Country: EU (occurrence: EU)
  Receive Date: 20250703
  Receipt Date: 20251022
  Transmission Date: 20260117
  Serious: Yes (Hospitalization)
  Sender: ASTELLAS
  Company Number: EU-ASTELLAS-2025-AER-035019

PATIENT
  Age: 66 Year
  Sex: Female

DRUGS (7)
  1. ENFORTUMAB VEDOTIN [Suspect]
     Active Substance: ENFORTUMAB VEDOTIN
     Indication: Transitional cell carcinoma
     Dosage: 1 COUNT, WEEKLY?EVERY 3 WEEKS DAY 1 AND 8
     Route: 065
     Dates: start: 20250623, end: 20250630
  2. PEMBROLIZUMAB [Suspect]
     Active Substance: PEMBROLIZUMAB
     Indication: Transitional cell carcinoma
     Dosage: 1 COUNT?EVERY 3 WEEKS
     Route: 065
     Dates: start: 20250623, end: 20250623
  3. NALOXONE HYDROCHLORIDE\TILIDINE HYDROCHLORIDE [Concomitant]
     Active Substance: NALOXONE HYDROCHLORIDE\TILIDINE HYDROCHLORIDE
     Indication: Pain
     Dosage: DOSE: 50MG/4MG, 1-0-1?ONGOING
     Route: 065
     Dates: start: 20250617
  4. CELECOXIB [Concomitant]
     Active Substance: CELECOXIB
     Indication: Pain
     Dosage: 100 MG 2-0-0?ONGOING
     Route: 065
     Dates: start: 20250618
  5. PANTOPRAZOLE SODIUM [Concomitant]
     Active Substance: PANTOPRAZOLE SODIUM
     Indication: Prophylaxis
     Dosage: 1-0-0?ONGOING
     Route: 065
     Dates: start: 20250618
  6. MOVICOL [Concomitant]
     Active Substance: POLYETHYLENE GLYCOL 3350\POTASSIUM CHLORIDE\SODIUM BICARBONATE\SODIUM CHLORIDE
     Indication: Constipation
     Dosage: 1 BAG, 1-0-0?ONGOING
     Route: 065
     Dates: start: 20250626
  7. Metoclopramid (MCP) [Concomitant]
     Indication: Nausea
     Dosage: ON DEMAND?ONGOING
     Route: 065
     Dates: start: 20250626

REACTIONS (2)
  - Infusion related reaction [Recovered/Resolved]
  - Rash maculo-papular [Recovered/Resolved with Sequelae]

NARRATIVE: CASE EVENT DATE: 20250623
